FAERS Safety Report 7640994-4 (Version None)
Quarter: 2011Q3

REPORT INFORMATION
  Report Type: 
  Country: None (occurrence: None)
  Receive Date: 20110722
  Receipt Date: 20110706
  Transmission Date: 20111222
  Serious: Yes (Death, Life-Threatening, Other)
  Sender: FDA-Public Use
  Company Number: 2011MA008435

PATIENT
  Age: 11 Year
  Sex: Male

DRUGS (8)
  1. PREDNISOLONE [Suspect]
     Indication: CHEMOTHERAPY
     Dosage: 60 MG/M2
  2. MYCOPHENOLATE MOFETIL [Suspect]
     Indication: PROPHYLAXIS AGAINST GRAFT VERSUS HOST DISEASE
  3. CYCLOPHOSPHAMIDE [Suspect]
     Indication: BONE MARROW TRANSPLANT
     Dosage: 10 MG/KG
  4. FLUDARABINE PHOSPHATE [Suspect]
     Indication: BONE MARROW TRANSPLANT
     Dosage: 25 MG/M2, IV
     Route: 042
  5. RABBIT ANTITHYMOCYTE GLOBULIN [Suspect]
     Indication: BONE MARROW TRANSPLANT
     Dosage: 1.25 MG/KG
  6. TACROLIMUS [Suspect]
     Indication: PROPHYLAXIS AGAINST GRAFT VERSUS HOST DISEASE
  7. METHOTREXATE [Suspect]
     Indication: PROPHYLAXIS AGAINST GRAFT VERSUS HOST DISEASE
  8. CYTARABINE [Suspect]
     Indication: CHEMOTHERAPY
     Dosage: 300 MG/M2

REACTIONS (10)
  - PRECURSOR T-LYMPHOBLASTIC LYMPHOMA/LEUKAEMIA [None]
  - GENERAL PHYSICAL HEALTH DETERIORATION [None]
  - PLEURAL EFFUSION [None]
  - ILEUS PARALYTIC [None]
  - CARDIO-RESPIRATORY ARREST [None]
  - SUDDEN DEATH [None]
  - HYPOPROTEINAEMIA [None]
  - SKIN EROSION [None]
  - HYPERGLYCAEMIA [None]
  - TOXICITY TO VARIOUS AGENTS [None]
